FAERS Safety Report 8729429 (Version 2)
Quarter: 2012Q4

REPORT INFORMATION
  Report Type: 
  Country: ES (occurrence: ES)
  Receive Date: 20120817
  Receipt Date: 20121004
  Transmission Date: 20130627
  Serious: Yes (Hospitalization)
  Sender: FDA-Public Use
  Company Number: ES-B.I. PHARMACEUTICALS,INC./RIDGEFIELD-2012-ES-00321ES

PATIENT
  Age: 71 Year
  Sex: Female

DRUGS (4)
  1. PRADAXA [Suspect]
     Indication: ATRIAL FIBRILLATION
     Dosage: 220 mg
     Route: 048
     Dates: start: 20120227, end: 20120408
  2. AMOXICILLIN\CLAVULANATE POTASSIUM [Suspect]
     Dosage: daily dose: 3 fixed dose daily
     Route: 048
     Dates: start: 20120308, end: 20120316
  3. PRAVASTATINA [Concomitant]
     Indication: HYPERLIPIDAEMIA
     Dosage: 40 mg
     Route: 048
     Dates: start: 2011
  4. TENORETIC [Concomitant]
     Indication: HYPERTENSION
     Dosage: 100 mg
     Route: 048

REACTIONS (3)
  - Hepatitis [Not Recovered/Not Resolved]
  - Choluria [Recovered/Resolved]
  - Hepatic enzyme increased [Not Recovered/Not Resolved]
